FAERS Safety Report 19787145 (Version 4)
Quarter: 2021Q4

REPORT INFORMATION
  Report Type: Report from Study
  Country: AU (occurrence: AU)
  Receive Date: 20210903
  Receipt Date: 20211202
  Transmission Date: 20220303
  Serious: Yes (Hospitalization, Other)
  Sender: FDA-Public Use
  Company Number: AU-BAYER-2021-201306

PATIENT

DRUGS (2)
  1. EYLEA [Suspect]
     Active Substance: AFLIBERCEPT
     Indication: Neovascular age-related macular degeneration
     Dosage: 1 DF, ONCE FIRST DOSE INTO RIGHT EYE
     Route: 031
     Dates: start: 20200724, end: 20200724
  2. EYLEA [Suspect]
     Active Substance: AFLIBERCEPT
     Dosage: RIGHT EYE INJECTIONS; DOSE AND FREQUENCY NOT REPORTED
     Route: 031

REACTIONS (6)
  - Coronary artery bypass [Recovering/Resolving]
  - Lung disorder [Recovering/Resolving]
  - Neovascular age-related macular degeneration [Not Recovered/Not Resolved]
  - Dyspnoea [Recovering/Resolving]
  - Chest pain [Recovering/Resolving]
  - Incorrect product administration duration [Unknown]

NARRATIVE: CASE EVENT DATE: 20210701
